FAERS Safety Report 12952869 (Version 1)
Quarter: 2016Q4

REPORT INFORMATION
  Report Type: Report from Study
  Country: US (occurrence: US)
  Receive Date: 20161117
  Receipt Date: 20161117
  Transmission Date: 20170207
  Serious: Yes (Hospitalization, Other)
  Sender: FDA-Public Use
  Company Number: US-PFIZER INC-2016528851

PATIENT
  Age: 51 Year
  Sex: Male

DRUGS (9)
  1. ERGOTAMINE [Concomitant]
     Active Substance: CAFFEINE\ERGOTAMINE\ERGOTAMINE TARTRATE
     Indication: MIGRAINE
     Dosage: UNK
  2. TOFRANIL [Concomitant]
     Active Substance: IMIPRAMINE HYDROCHLORIDE
     Dosage: UNK
     Dates: start: 197901
  3. PENTAZOCINE LACTATE [Suspect]
     Active Substance: PENTAZOCINE LACTATE
     Dosage: LESS OFTEN THAN EVERY 8 HOURS
  4. PENTAZOCINE LACTATE [Suspect]
     Active Substance: PENTAZOCINE LACTATE
     Indication: PAIN
     Dosage: INJECTING 100 TO 200 MG PER DAY
     Dates: start: 1970
  5. PENTAZOCINE LACTATE [Suspect]
     Active Substance: PENTAZOCINE LACTATE
     Dosage: 200 MG, EVERY 4 HOURS
  6. PENTAZOCINE LACTATE [Suspect]
     Active Substance: PENTAZOCINE LACTATE
     Dosage: 200 MG, EVERY 3 HOURS
  7. PENTAZOCINE LACTATE [Suspect]
     Active Substance: PENTAZOCINE LACTATE
     Dosage: 300 MG, EVERY 3 HOURS
  8. PENTAZOCINE LACTATE [Suspect]
     Active Substance: PENTAZOCINE LACTATE
     Dosage: 300 MG
     Route: 030
  9. SECOBARBITAL [Concomitant]
     Active Substance: SECOBARBITAL
     Indication: SLEEP DISORDER
     Dosage: UNK

REACTIONS (5)
  - Skin hyperpigmentation [Unknown]
  - Scleroderma [Unknown]
  - Drug abuse [Unknown]
  - Skin ulcer [Unknown]
  - Skin fibrosis [Unknown]
